FAERS Safety Report 6483697-4 (Version None)
Quarter: 2009Q4

REPORT INFORMATION
  Report Type: 
  Country: None (occurrence: None)
  Receive Date: 20091209
  Receipt Date: 20090629
  Transmission Date: 20100525
  Serious: No
  Sender: FDA-Public Use
  Company Number: US-AMGEN-KDL345427

PATIENT
  Sex: Female
  Weight: 67.2 kg

DRUGS (4)
  1. ENBREL [Suspect]
     Indication: RHEUMATOID ARTHRITIS
     Route: 058
     Dates: start: 20090213
  2. ENBREL [Suspect]
     Indication: ANKYLOSING SPONDYLITIS
  3. ENBREL [Suspect]
     Indication: CROHN'S DISEASE
  4. HUMIRA [Suspect]

REACTIONS (3)
  - ARTHRALGIA [None]
  - BONE PAIN [None]
  - RASH [None]
